FAERS Safety Report 8054706-6 (Version None)
Quarter: 2012Q1

REPORT INFORMATION
  Report Type: 
  Country: None (occurrence: None)
  Receive Date: 20120119
  Receipt Date: 20120112
  Transmission Date: 20120608
  Serious: No
  Sender: FDA-Public Use
  Company Number: US-PFIZER INC-2012009646

PATIENT
  Sex: Male
  Weight: 134 kg

DRUGS (16)
  1. ZOLPIDEM [Concomitant]
     Dosage: 10 MG, UNK
  2. TRILIPIX [Concomitant]
     Dosage: 135 MG, UNK
  3. TOPROL-XL [Concomitant]
     Dosage: 100 MG, UNK
  4. VITAMIN D [Concomitant]
     Dosage: 1000 UNIT
  5. VICODIN HP [Concomitant]
     Dosage: 10-660 MG
  6. CLONAZEPAM [Concomitant]
     Dosage: 0.5 MG, UNK
  7. OMEPRAZOLE [Concomitant]
     Dosage: 40 MG, UNK
  8. LEVOTHYROXINE [Concomitant]
     Dosage: 137 UG, UNK
  9. SUTENT [Suspect]
     Dosage: 50 MG, TAKE 1 CAPSULE BY MOUTH EVERY DAY FOR 28 DAYS ON, 14 DAYS OFF
  10. CRESTOR [Concomitant]
     Dosage: 40 MG, UNK
  11. LOSARTAN POTASSIUM [Concomitant]
     Dosage: 100 MG, UNK
  12. CITALOPRAM [Concomitant]
     Dosage: 40 MG, UNK
  13. ACETYLSALICYLIC ACID [Concomitant]
     Dosage: 81 MG, EC
  14. AMLODIPINE [Concomitant]
     Dosage: 10 MG, UNK
  15. FLONASE [Concomitant]
     Dosage: 0.05%, UNK
  16. FRAGMIN [Concomitant]
     Dosage: 10000/ML

REACTIONS (5)
  - VOMITING [None]
  - NAUSEA [None]
  - DIARRHOEA [None]
  - CONSTIPATION [None]
  - HYPERKERATOSIS [None]
